FAERS Safety Report 20393592 (Version 1)
Quarter: 2022Q1

REPORT INFORMATION
  Report Type: Spontaneous
  Country: US (occurrence: US)
  Receive Date: 20220128
  Receipt Date: 20220128
  Transmission Date: 20220423
  Serious: Yes (Other)
  Sender: FDA-Public Use
  Company Number: US-NOVARTISPH-NVSC2022US015915

PATIENT

DRUGS (4)
  1. AFINITOR [Suspect]
     Active Substance: EVEROLIMUS
     Indication: Cholangiocarcinoma
     Dosage: 10 MG, QD (28 DAYS CYCLE)
     Route: 048
  2. AFINITOR [Suspect]
     Active Substance: EVEROLIMUS
     Indication: Hepatocellular carcinoma
  3. VOROLANIB [Suspect]
     Active Substance: VOROLANIB
     Indication: Cholangiocarcinoma
     Dosage: UNK (28 DAYS CYCLE)
     Route: 048
  4. VOROLANIB [Suspect]
     Active Substance: VOROLANIB
     Indication: Hepatocellular carcinoma

REACTIONS (4)
  - Cholangiocarcinoma [Unknown]
  - Hepatocellular carcinoma [Unknown]
  - Malignant neoplasm progression [Unknown]
  - Product use in unapproved indication [Unknown]
